FAERS Safety Report 6490050-6 (Version None)
Quarter: 2009Q4

REPORT INFORMATION
  Report Type: 
  Country: None (occurrence: None)
  Receive Date: 20091211
  Receipt Date: 20091130
  Transmission Date: 20100525
  Serious: Yes (Other)
  Sender: FDA-Public Use
  Company Number: PHHY2009BR53021

PATIENT
  Age: 38 Year
  Sex: Female

DRUGS (10)
  1. LEPONEX [Suspect]
     Indication: SCHIZOPHRENIA
     Dosage: 25 MG/DAY
     Route: 048
     Dates: start: 20090801
  2. LEPONEX [Suspect]
     Dosage: 50 MG/DAY
     Route: 048
  3. LEPONEX [Suspect]
     Dosage: 100 MG/DAY
     Route: 048
  4. LEPONEX [Suspect]
     Dosage: 200 MG/DAY
     Route: 048
  5. LEPONEX [Suspect]
     Dosage: 1 TABLET IN THE MORNING AND 1.5 TABLET AT NIGHT
     Route: 048
  6. LEPONEX [Suspect]
     Dosage: 300 MG/DAY
     Route: 048
  7. LEPONEX [Suspect]
     Dosage: 200 MG/DAY
     Route: 048
  8. RISPERIDONE [Concomitant]
     Dosage: 4 OR 6 MG DAILY
  9. RISPERIDONE [Concomitant]
     Dosage: 2 MG/DAY
  10. CLONAZEPAM [Concomitant]
     Indication: INSOMNIA
     Dosage: 1 TABLET/DAY
     Route: 048

REACTIONS (15)
  - AGGRESSION [None]
  - DELIRIUM [None]
  - DRUG INEFFECTIVE [None]
  - EOSINOPHILIA [None]
  - EXTRAPYRAMIDAL DISORDER [None]
  - FALL [None]
  - FREQUENT BOWEL MOVEMENTS [None]
  - HALLUCINATION [None]
  - LICE INFESTATION [None]
  - LOSS OF CONSCIOUSNESS [None]
  - MASKED FACIES [None]
  - MOBILITY DECREASED [None]
  - MOTOR DYSFUNCTION [None]
  - THINKING ABNORMAL [None]
  - TREMOR [None]
